FAERS Safety Report 7189945-X (Version None)
Quarter: 2010Q4

REPORT INFORMATION
  Report Type: 
  Country: None (occurrence: None)
  Receive Date: 20101213
  Receipt Date: 20101125
  Transmission Date: 20110411
  Serious: Yes (Other)
  Sender: FDA-Public Use
  Company Number: 1000017596

PATIENT
  Sex: Male

DRUGS (5)
  1. ESCITALOPRAM [Suspect]
     Indication: MAJOR DEPRESSION
     Dosage: SEE IMAGE: ORAL
     Route: 048
  2. ESCITALOPRAM [Suspect]
     Indication: MAJOR DEPRESSION
     Dosage: SEE IMAGE: ORAL
     Route: 048
  3. INSULIN [Concomitant]
  4. ALTACE [Concomitant]
  5. CHEMOTHERAPY [Concomitant]

REACTIONS (4)
  - DIZZINESS [None]
  - FATIGUE [None]
  - SUICIDAL IDEATION [None]
  - THINKING ABNORMAL [None]
